FAERS Safety Report 14146378 (Version 1)
Quarter: 2017Q4

REPORT INFORMATION
  Report Type: Spontaneous
  Country: US (occurrence: None)
  Receive Date: 20171031
  Receipt Date: 20171031
  Transmission Date: 20180321
  Serious: Yes (Hospitalization)
  Sender: FDA-Public Use
  Company Number: None

PATIENT
  Age: 2 Year
  Sex: Male
  Weight: 12.7 kg

DRUGS (5)
  1. ONCASPAR [Suspect]
     Active Substance: PEGASPARGASE
     Dates: end: 20170531
  2. CYTARABINE. [Suspect]
     Active Substance: CYTARABINE
     Dates: end: 20170620
  3. CYCLOPHOSPHAMIDE. [Suspect]
     Active Substance: CYCLOPHOSPHAMIDE
     Dates: end: 20170613
  4. MERCAPTOPURINE. [Suspect]
     Active Substance: MERCAPTOPURINE
     Dates: end: 20170623
  5. VINCRISTINE SULFATE. [Suspect]
     Active Substance: VINCRISTINE SULFATE
     Dates: end: 20170627

REACTIONS (8)
  - Abdominal pain [None]
  - Vomiting [None]
  - Oxygen saturation decreased [None]
  - Lethargy [None]
  - Pain [None]
  - Listless [None]
  - Skin discolouration [None]
  - Infusion related reaction [None]

NARRATIVE: CASE EVENT DATE: 20170627
